FAERS Safety Report 4293736-7 (Version None)
Quarter: 2004Q1

REPORT INFORMATION
  Report Type: 
  Country: None (occurrence: None)
  Receive Date: 20040126
  Receipt Date: 20031017
  Transmission Date: 20041129
  Serious: No
  Sender: FDA-Public Use
  Company Number: USA031050244

PATIENT
  Age: 73 Year
  Sex: Female
  Weight: 54 kg

DRUGS (5)
  1. FORTEO [Suspect]
     Indication: OSTEOPOROSIS
     Dosage: 20 UG/DAY
     Dates: start: 20030926, end: 20031008
  2. COUMADIN [Concomitant]
  3. TAMBOCOR [Concomitant]
  4. NEURONTIN [Concomitant]
  5. LANOXIN [Concomitant]

REACTIONS (2)
  - DUODENAL ULCER [None]
  - GINGIVAL BLEEDING [None]
